FAERS Safety Report 9819581 (Version 2)
Quarter: 2014Q1

REPORT INFORMATION
  Report Type: Spontaneous
  Country: BR (occurrence: BR)
  Receive Date: 20140115
  Receipt Date: 20140130
  Transmission Date: 20141002
  Serious: Yes (Hospitalization, Other)
  Sender: FDA-Public Use
  Company Number: BR-ELI_LILLY_AND_COMPANY-BR201401005165

PATIENT
  Age: 1 Day
  Sex: 0
  Weight: 2.22 kg

DRUGS (1)
  1. HUMULIN N [Suspect]
     Indication: PRODUCT USED FOR UNKNOWN INDICATION
     Dosage: UNK UNK, UNKNOWN
     Route: 064

REACTIONS (3)
  - Premature baby [Recovered/Resolved]
  - Blood glucose decreased [Recovered/Resolved]
  - Foetal exposure during pregnancy [Recovered/Resolved]
